FAERS Safety Report 5023223-X (Version None)
Quarter: 2006Q2

REPORT INFORMATION
  Report Type: 
  Country: None (occurrence: None)
  Receive Date: 20060428
  Receipt Date: 20060124
  Transmission Date: 20061013
  Serious: No
  Sender: FDA-Public Use
  Company Number: 012019

PATIENT
  Age: 43 Year
  Sex: Female

DRUGS (13)
  1. PRIALT [Suspect]
     Indication: PAIN
     Dosage: SEE IMAGE
     Route: 037
     Dates: start: 20051006, end: 20051028
  2. PRIALT [Suspect]
     Indication: PAIN
     Dosage: SEE IMAGE
     Route: 037
     Dates: start: 20051028, end: 20060119
  3. PRIALT [Suspect]
     Indication: PAIN
     Dosage: SEE IMAGE
     Route: 037
     Dates: start: 20060119
  4. VICODIN [Concomitant]
  5. BACLOFEN [Concomitant]
  6. AVINZA [Concomitant]
  7. CYMBALTA [Concomitant]
  8. LIDODERM [Concomitant]
  9. ESZOPICLONE (ESZOPICLONE) [Concomitant]
  10. ELAVIL [Concomitant]
  11. PEPCID /00706001/ (FAMOTIDINE) [Concomitant]
  12. PERCODAN (ACETYLSALICYLIC ACID, CAFFEINE, HOMATROPINE TEREPHTHALATE, O [Concomitant]
  13. BUPIVACAINE [Concomitant]

REACTIONS (27)
  - ANOREXIA [None]
  - ARTHRALGIA [None]
  - BACK PAIN [None]
  - BALANCE DISORDER [None]
  - CHILLS [None]
  - COORDINATION ABNORMAL [None]
  - DIARRHOEA [None]
  - DYSARTHRIA [None]
  - DYSGEUSIA [None]
  - ENERGY INCREASED [None]
  - FACE INJURY [None]
  - FALL [None]
  - FATIGUE [None]
  - FEELING ABNORMAL [None]
  - FEELING COLD [None]
  - FEELING HOT [None]
  - FEELING JITTERY [None]
  - INSOMNIA [None]
  - LIVER FUNCTION TEST ABNORMAL [None]
  - MUSCULOSKELETAL DISCOMFORT [None]
  - NAUSEA [None]
  - NECK INJURY [None]
  - NECK PAIN [None]
  - PAIN IN EXTREMITY [None]
  - RASH [None]
  - TREMOR [None]
  - WEIGHT DECREASED [None]
